FAERS Safety Report 17121987 (Version 3)
Quarter: 2020Q1

REPORT INFORMATION
  Report Type: Spontaneous
  Country: US (occurrence: US)
  Receive Date: 20191206
  Receipt Date: 20200108
  Transmission Date: 20200409
  Serious: No
  Sender: FDA-Public Use
  Company Number: US-PFIZER INC-2019421767

PATIENT
  Age: 23 Year
  Sex: Male
  Weight: 70.3 kg

DRUGS (16)
  1. PHARMANAC [Concomitant]
     Indication: SUPPLEMENTATION THERAPY
     Dosage: 900 MG, 1X/DAY [1 TAB QD (ONCE A DAY) IN AM ]
  2. METAMUCIL [Concomitant]
     Active Substance: PLANTAGO SEED
     Indication: PROBIOTIC THERAPY
     Dosage: UNK, DAILY [1 WAFER PER DAY]
  3. GENOTROPIN MQ [Suspect]
     Active Substance: SOMATROPIN
     Indication: GROWTH HORMONE DEFICIENCY
  4. OMEPRAZOLE. [Concomitant]
     Active Substance: OMEPRAZOLE
     Indication: ABDOMINAL DISCOMFORT
     Dosage: 20 MG, 1X/DAY [AM]
  5. GENOTROPIN MQ [Suspect]
     Active Substance: SOMATROPIN
     Indication: CONGENITAL ANOMALY
     Dosage: UNK UNK, 1X/DAY (1.2 1X/DAY)
     Dates: start: 2002, end: 201909
  6. OMEPRAZOLE. [Concomitant]
     Active Substance: OMEPRAZOLE
     Indication: GASTROOESOPHAGEAL REFLUX DISEASE
     Dosage: 40 MG, DAILY [2 CAPSULES IN H2O D ]
  7. MIRALAX [Concomitant]
     Active Substance: POLYETHYLENE GLYCOL 3350
     Indication: LAXATIVE SUPPORTIVE CARE
     Dosage: UNK
  8. MIRALAX [Concomitant]
     Active Substance: POLYETHYLENE GLYCOL 3350
     Indication: GASTROINTESTINAL DISORDER
     Dosage: 1 DF, DAILY
  9. OMEPRAZOLE. [Concomitant]
     Active Substance: OMEPRAZOLE
     Dosage: UNK
  10. GENOTROPIN MQ [Suspect]
     Active Substance: SOMATROPIN
     Indication: PRADER-WILLI SYNDROME
     Dosage: 1.2 MG, DAILY (BEDTIME)
     Dates: start: 2001, end: 201909
  11. WELLBUTRIN [Concomitant]
     Active Substance: BUPROPION HYDROCHLORIDE
     Indication: AFFECTIVE DISORDER
     Dosage: 300 MG, 1X/DAY [TAB IN AM ]
  12. TRILAFON [Concomitant]
     Active Substance: PERPHENAZINE
     Indication: PSYCHOTIC BEHAVIOUR
     Dosage: 8 MG, 3X/DAY
  13. PHILLIPS COLON HEALTH [Concomitant]
     Indication: PROBIOTIC THERAPY
     Dosage: 1 DF, 1X/DAY [1 TAB IN AM]
  14. CLARITIN [CLARITHROMYCIN] [Concomitant]
     Active Substance: CLARITHROMYCIN
     Indication: HYPERSENSITIVITY
     Dosage: 10 MG, UNK
  15. GENOTROPIN MQ [Suspect]
     Active Substance: SOMATROPIN
     Indication: BODY HEIGHT BELOW NORMAL
  16. FLUTICASONE. [Concomitant]
     Active Substance: FLUTICASONE
     Indication: SEASONAL ALLERGY
     Dosage: ONE SPRAY EACH NOSTRIL
     Route: 045

REACTIONS (2)
  - Mania [Recovered/Resolved]
  - Psychotic disorder [Recovered/Resolved]

NARRATIVE: CASE EVENT DATE: 20191001
